FAERS Safety Report 6204726-9 (Version None)
Quarter: 2009Q2

REPORT INFORMATION
  Report Type: 
  Country: None (occurrence: None)
  Receive Date: 20090527
  Receipt Date: 20090515
  Transmission Date: 20091009
  Serious: Yes (Other)
  Sender: FDA-Public Use
  Company Number: HR-PFIZER INC-2009217028

PATIENT
  Age: 46 Year

DRUGS (2)
  1. XANAX [Suspect]
     Indication: RESTLESS LEGS SYNDROME
     Dosage: 0.25 MG, 2X/DAY
     Route: 048
     Dates: start: 20070101, end: 20090402
  2. IRUMED [Concomitant]
     Route: 048
     Dates: end: 20090402

REACTIONS (3)
  - EXTRAPYRAMIDAL DISORDER [None]
  - FEELING ABNORMAL [None]
  - SERUM FERRITIN DECREASED [None]
